FAERS Safety Report 12934262 (Version 1)
Quarter: 2016Q4

REPORT INFORMATION
  Report Type: Spontaneous
  Country: US (occurrence: US)
  Receive Date: 20161111
  Receipt Date: 20161111
  Transmission Date: 20170207
  Serious: Yes (Other)
  Sender: FDA-Public Use
  Company Number: US-MALLINCKRODT-T201605628

PATIENT
  Age: 5 Month
  Sex: Female

DRUGS (3)
  1. H.P. ACTHAR [Suspect]
     Active Substance: CORTICOTROPIN
     Indication: INFANTILE SPASMS
     Dosage: 30U/.375 ML ONCE DAILY
     Route: 030
     Dates: start: 20161021
  2. DIURIL                             /00011801/ [Concomitant]
     Indication: PRODUCT USED FOR UNKNOWN INDICATION
     Dosage: SUSPENSION, 250/5 ML , FREQUENCY UNKNOWN
  3. RANITIDINE. [Concomitant]
     Active Substance: RANITIDINE
     Indication: PRODUCT USED FOR UNKNOWN INDICATION
     Dosage: SYRUP, 150/10 ML , FREQUENCY UNKNOWN

REACTIONS (3)
  - Cleft lip [Unknown]
  - Mood altered [Unknown]
  - Seizure [Unknown]

NARRATIVE: CASE EVENT DATE: 201610
